FAERS Safety Report 5379360-3 (Version None)
Quarter: 2007Q3

REPORT INFORMATION
  Report Type: 
  Country: None (occurrence: None)
  Receive Date: 20070705
  Receipt Date: 20070626
  Transmission Date: 20080115
  Serious: Yes (Hospitalization)
  Sender: FDA-Public Use
  Company Number: BE-ABBOTT-07P-013-0372937-00

PATIENT
  Sex: Female

DRUGS (2)
  1. NORVIR [Suspect]
     Indication: HIV INFECTION
  2. FOSAMPRENAVIR [Concomitant]
     Indication: HIV INFECTION

REACTIONS (2)
  - ALCOHOLISM [None]
  - COMA [None]
